FAERS Safety Report 14666631 (Version 2)
Quarter: 2018Q4

REPORT INFORMATION
  Report Type: Spontaneous
  Country: FR (occurrence: FR)
  Receive Date: 20180322
  Receipt Date: 20181026
  Transmission Date: 20190204
  Serious: Yes (Other)
  Sender: FDA-Public Use
  Company Number: FR-MERCK KGAA-2044254

PATIENT
  Age: 33 Year
  Sex: Male

DRUGS (2)
  1. LEVOTHYROX NF [Suspect]
     Active Substance: LEVOTHYROXINE SODIUM
     Dates: end: 2017
  2. EUTHYROX [Suspect]
     Active Substance: LEVOTHYROXINE SODIUM
     Indication: PRODUCT USED FOR UNKNOWN INDICATION
     Dates: start: 201703

REACTIONS (22)
  - Muscle fatigue [None]
  - Depression [None]
  - Nausea [None]
  - Mood swings [None]
  - Gastrointestinal disorder [None]
  - Impatience [None]
  - Personal relationship issue [None]
  - Tachycardia [None]
  - Somnolence [Recovering/Resolving]
  - Hypersensitivity [None]
  - Nervousness [None]
  - Arthralgia [None]
  - Fatigue [None]
  - Disturbance in attention [Recovering/Resolving]
  - Hypothyroidism [None]
  - Poor quality sleep [None]
  - Hyperthyroidism [None]
  - Apathy [Recovered/Resolved]
  - Decreased appetite [Recovered/Resolved]
  - Irritability [None]
  - Emotional disorder [None]
  - Frequent bowel movements [None]

NARRATIVE: CASE EVENT DATE: 2017
